FAERS Safety Report 13212873 (Version 2)
Quarter: 2017Q1

REPORT INFORMATION
  Report Type: Report from Study
  Country: US (occurrence: US)
  Receive Date: 20170210
  Receipt Date: 20170223
  Transmission Date: 20170428
  Serious: Yes (Death, Hospitalization)
  Sender: FDA-Public Use
  Company Number: US-PFIZER INC-2017049966

PATIENT
  Age: 72 Year
  Sex: Female
  Weight: 57 kg

DRUGS (1)
  1. PALBOCICLIB [Suspect]
     Active Substance: PALBOCICLIB
     Indication: PANCREATIC CARCINOMA
     Dosage: 125 MG, DAILY
     Route: 048
     Dates: start: 20160725, end: 20160801

REACTIONS (1)
  - Neoplasm progression [Fatal]

NARRATIVE: CASE EVENT DATE: 20160801
